FAERS Safety Report 7070102-2 (Version None)
Quarter: 2010Q4

REPORT INFORMATION
  Report Type: 
  Country: None (occurrence: None)
  Receive Date: 20101028
  Receipt Date: 20100910
  Transmission Date: 20110411
  Serious: No
  Sender: FDA-Public Use
  Company Number: US-WYE-H17499710

PATIENT
  Age: 70 Year
  Sex: Male

DRUGS (1)
  1. ADVIL [Suspect]
     Indication: ARTHRALGIA
     Dosage: 1 LIQUIGEL BEFORE SLEEP
     Route: 048
     Dates: start: 20100829, end: 20100908

REACTIONS (1)
  - DYSPEPSIA [None]
